FAERS Safety Report 10482897 (Version 1)
Quarter: 2014Q3

REPORT INFORMATION
  Report Type: Spontaneous
  Country: BR (occurrence: BR)
  Receive Date: 20140929
  Receipt Date: 20140929
  Transmission Date: 20150326
  Serious: Yes (Other)
  Sender: FDA-Public Use
  Company Number: PHHY2014BR127257

PATIENT
  Sex: Female
  Weight: 90 kg

DRUGS (4)
  1. DICLOFENAC [Suspect]
     Active Substance: DICLOFENAC
     Indication: PAIN
     Dosage: 2 DF, Q12H (2 TABLETS EVERY 12 HOURS)
  2. ANADOR /BRA/ [Suspect]
     Active Substance: METAMIZOLE
     Indication: PAIN
     Dosage: 2 DF, Q12H
  3. ENXAK /01470401/ [Suspect]
     Active Substance: CAFFEINE\DIHYDROERGOTAMINE MESYLATE\METAMIZOLE SODIUM
     Indication: MIGRAINE
     Dosage: 2 DF, Q12H
  4. DIPYRON//METAMIZOLE SODIUM [Suspect]
     Active Substance: DIPYRONE
     Indication: PAIN
     Dosage: 1 DF, Q6H (1 TABLET EVERY 6 HOURS OR EVERY 8 HOURS DEPENDING ON THE PAIN)

REACTIONS (10)
  - Fibromyalgia [Not Recovered/Not Resolved]
  - Feeling of despair [Unknown]
  - Back pain [Not Recovered/Not Resolved]
  - Osteonecrosis [Unknown]
  - Nervousness [Unknown]
  - Asthenia [Unknown]
  - Drug ineffective [Unknown]
  - Pain in extremity [Not Recovered/Not Resolved]
  - Anxiety [Unknown]
  - Dizziness [Unknown]
